FAERS Safety Report 9094534 (Version 2)
Quarter: 2013Q2

REPORT INFORMATION
  Report Type: Spontaneous
  Country: US (occurrence: US)
  Receive Date: 20130220
  Receipt Date: 20130405
  Transmission Date: 20140414
  Serious: Yes (Life-Threatening, Hospitalization)
  Sender: FDA-Public Use
  Company Number: US-009507513-1302USA007569

PATIENT
  Age: 22 Year
  Sex: Female

DRUGS (1)
  1. INTRONA [Suspect]
     Dosage: INTRON A INJECTION S 25
     Route: 042

REACTIONS (1)
  - Swollen tongue [Unknown]
